FAERS Safety Report 20873024 (Version 2)
Quarter: 2022Q4

REPORT INFORMATION
  Report Type: Spontaneous
  Country: CA (occurrence: CA)
  Receive Date: 20220525
  Receipt Date: 20221114
  Transmission Date: 20230113
  Serious: Yes (Hospitalization, Other)
  Sender: FDA-Public Use
  Company Number: CA-TAKEDA-2022TUS033927

PATIENT
  Age: 40 Year
  Sex: Female

DRUGS (5)
  1. PANTOPRAZOLE [Suspect]
     Active Substance: PANTOPRAZOLE
     Dosage: 40 MILLIGRAM, QD
     Route: 048
  2. COLCHICINE [Suspect]
     Active Substance: COLCHICINE
     Dosage: 0.6 MILLIGRAM, TID
     Route: 048
     Dates: start: 20210308, end: 202112
  3. CALCIUM CARBONATE [Suspect]
     Active Substance: CALCIUM CARBONATE
     Dosage: 500 MILLIGRAM, QD
     Route: 048
     Dates: start: 202103
  4. AZATHIOPRINE [Concomitant]
     Active Substance: AZATHIOPRINE
     Dosage: UNK UNK, BID
     Route: 048
     Dates: start: 20210825, end: 202109
  5. VITAMIN D3 [Concomitant]
     Active Substance: CHOLECALCIFEROL
     Dosage: UNK UNK, QD
     Route: 048

REACTIONS (15)
  - Abdominal discomfort [Unknown]
  - Abdominal pain [Unknown]
  - Arthralgia [Unknown]
  - Chills [Unknown]
  - Condition aggravated [Unknown]
  - Fatigue [Unknown]
  - Headache [Unknown]
  - Malaise [Unknown]
  - Myalgia [Unknown]
  - Nausea [Unknown]
  - Pericarditis [Unknown]
  - Pyrexia [Unknown]
  - Rash [Unknown]
  - Vomiting [Unknown]
  - Drug ineffective [Unknown]

NARRATIVE: CASE EVENT DATE: 20210101
